FAERS Safety Report 25619534 (Version 1)
Quarter: 2025Q3

REPORT INFORMATION
  Report Type: Spontaneous
  Country: BR (occurrence: BR)
  Receive Date: 20250729
  Receipt Date: 20250729
  Transmission Date: 20251021
  Serious: Yes (Death, Other)
  Sender: Alora Pharma
  Company Number: BR-ACELLA PHARMACEUTICALS, LLC-2025ALO02362

PATIENT
  Age: 73 Year
  Sex: Female

DRUGS (1)
  1. AMIODARONE HYDROCHLORIDE [Suspect]
     Active Substance: AMIODARONE HYDROCHLORIDE
     Indication: Ventricular tachyarrhythmia

REACTIONS (3)
  - Adenocarcinoma [Fatal]
  - Pulmonary toxicity [Recovering/Resolving]
  - Lung infiltration [Recovering/Resolving]
